FAERS Safety Report 4458258-9 (Version None)
Quarter: 2004Q3

REPORT INFORMATION
  Report Type: 
  Country: None (occurrence: None)
  Receive Date: 20040924
  Receipt Date: 20040914
  Transmission Date: 20050211
  Serious: Yes (Other)
  Sender: FDA-Public Use
  Company Number: JP-JNJFOC-20040904246

PATIENT
  Sex: Male

DRUGS (9)
  1. ITRIZOLE [Suspect]
     Indication: DRUG USE FOR UNKNOWN INDICATION
     Route: 049
  2. DIPYRIDAMOLE [Concomitant]
  3. ISOSORBIDE DINITRATE [Concomitant]
  4. CINIDIPINE [Concomitant]
  5. ASPIRIN [Concomitant]
  6. NAFTOPIDIL [Concomitant]
  7. FUROSEMIDE [Concomitant]
  8. ETIZOLAM [Concomitant]
  9. HUMAN INSULIN [Concomitant]

REACTIONS (2)
  - BLOOD CREATINE PHOSPHOKINASE INCREASED [None]
  - OEDEMA [None]
